FAERS Safety Report 18343375 (Version 8)
Quarter: 2021Q3

REPORT INFORMATION
  Report Type: Report from Study
  Country: US (occurrence: US)
  Receive Date: 20201005
  Receipt Date: 20210720
  Transmission Date: 20211014
  Serious: No
  Sender: FDA-Public Use
  Company Number: NVSC2020US268469

PATIENT
  Age: 53 Year
  Sex: Female

DRUGS (2)
  1. MAYZENT [Suspect]
     Active Substance: SIPONIMOD
     Indication: MULTIPLE SCLEROSIS
     Dosage: 2 MG, QD
     Route: 048
     Dates: start: 20201001, end: 20201001
  2. MAYZENT [Suspect]
     Active Substance: SIPONIMOD
     Dosage: 2 MG, QD
     Route: 048

REACTIONS (13)
  - Peripheral swelling [Unknown]
  - Fatigue [Unknown]
  - Illness [Unknown]
  - Dizziness [Unknown]
  - Diarrhoea [Unknown]
  - Fall [Unknown]
  - Amnesia [Unknown]
  - Headache [Unknown]
  - Ankle fracture [Unknown]
  - Joint injury [Unknown]
  - Memory impairment [Unknown]
  - Limb discomfort [Unknown]
  - Pain [Recovering/Resolving]

NARRATIVE: CASE EVENT DATE: 20201001
